FAERS Safety Report 4908589-0 (Version None)
Quarter: 2006Q1

REPORT INFORMATION
  Report Type: 
  Country: None (occurrence: None)
  Receive Date: 20060210
  Receipt Date: 20050908
  Transmission Date: 20060701
  Serious: No
  Sender: FDA-Public Use
  Company Number: US-GLAXOSMITHKLINE-A0573388A

PATIENT
  Age: 46 Year
  Sex: Female
  Weight: 49.1 kg

DRUGS (1)
  1. PAXIL CR [Suspect]
     Indication: DEPRESSION
     Route: 048

REACTIONS (2)
  - FEELING ABNORMAL [None]
  - PERFORMANCE STATUS DECREASED [None]
